FAERS Safety Report 6017355-7 (Version None)
Quarter: 2008Q4

REPORT INFORMATION
  Report Type: 
  Country: None (occurrence: None)
  Receive Date: 20081223
  Receipt Date: 20081216
  Transmission Date: 20090506
  Serious: Yes (Hospitalization)
  Sender: FDA-Public Use
  Company Number: ES-TYCO HEALTHCARE/MALLINCKRODT-T200802109

PATIENT

DRUGS (1)
  1. OPTIRAY 300 [Suspect]
     Dosage: 67.8 G, SINGLE
     Route: 042
     Dates: start: 20080911, end: 20080911

REACTIONS (1)
  - ANAPHYLACTIC SHOCK [None]
